FAERS Safety Report 25975790 (Version 1)
Quarter: 2025Q4

REPORT INFORMATION
  Report Type: Spontaneous
  Country: EU (occurrence: EU)
  Receive Date: 20251029
  Receipt Date: 20251029
  Transmission Date: 20260117
  Serious: Yes (Death, Hospitalization, Other)
  Sender: GILEAD
  Company Number: EU-GILEAD-2025-0734030

PATIENT
  Age: 19 Year
  Sex: Male

DRUGS (1)
  1. YESCARTA [Suspect]
     Active Substance: AXICABTAGENE CILOLEUCEL
     Indication: Primary mediastinal large B-cell lymphoma
     Dosage: UNK
     Route: 065

REACTIONS (7)
  - Staphylococcal infection [Fatal]
  - Candida infection [Fatal]
  - Aspergillus infection [Fatal]
  - Primary mediastinal large B-cell lymphoma [Fatal]
  - Tumour lysis syndrome [Fatal]
  - Arrhythmia [Fatal]
  - Cardiac arrest [Fatal]
